FAERS Safety Report 5674053-7 (Version None)
Quarter: 2008Q1

REPORT INFORMATION
  Report Type: 
  Country: None (occurrence: None)
  Receive Date: 20080317
  Receipt Date: 20080304
  Transmission Date: 20080703
  Serious: No
  Sender: FDA-Public Use
  Company Number: A-US2008-18982

PATIENT
  Age: 46 Year
  Sex: Female
  Weight: 60 kg

DRUGS (6)
  1. TRACLEER [Suspect]
     Indication: PULMONARY HYPERTENSION
     Dosage: 125 MG, BID, ORAL; 62.5 MG, BID, ORAL
     Route: 048
     Dates: start: 20061107, end: 20061121
  2. TRACLEER [Suspect]
     Indication: PULMONARY HYPERTENSION
     Dosage: 125 MG, BID, ORAL; 62.5 MG, BID, ORAL
     Route: 048
     Dates: start: 20061122, end: 20071217
  3. CLOPIDOGREL [Concomitant]
  4. WARFARIN SODIUM [Concomitant]
  5. FERROUS SULFATE TAB [Concomitant]
  6. ALLOPURINOL [Concomitant]

REACTIONS (2)
  - PARAPSORIASIS [None]
  - VASCULITIS [None]
